FAERS Safety Report 13689924 (Version 1)
Quarter: 2017Q2

REPORT INFORMATION
  Report Type: Spontaneous
  Country: US (occurrence: US)
  Receive Date: 20170626
  Receipt Date: 20170626
  Transmission Date: 20170830
  Serious: Yes (Other)
  Sender: FDA-Public Use
  Company Number: US-PFIZER INC-2017270250

PATIENT
  Age: 71 Year
  Sex: Female
  Weight: 59 kg

DRUGS (3)
  1. LYRICA [Suspect]
     Active Substance: PREGABALIN
     Dosage: 75 MG, UNK
  2. LYRICA [Suspect]
     Active Substance: PREGABALIN
     Indication: FIBROMYALGIA
     Dosage: 50 MG, 1X/DAY
     Route: 048
  3. LYRICA [Suspect]
     Active Substance: PREGABALIN
     Dosage: 100 MG, UNK

REACTIONS (10)
  - Fatigue [Unknown]
  - Malaise [Unknown]
  - Swelling face [Recovering/Resolving]
  - Euphoric mood [Unknown]
  - Expired product administered [Unknown]
  - Peripheral swelling [Recovering/Resolving]
  - Cataract [Unknown]
  - Memory impairment [Unknown]
  - Limb injury [Unknown]
  - Sleep disorder [Unknown]

NARRATIVE: CASE EVENT DATE: 201706
